FAERS Safety Report 12000906 (Version 1)
Quarter: 2016Q1

REPORT INFORMATION
  Report Type: Spontaneous
  Country: FR (occurrence: FR)
  Receive Date: 20160204
  Receipt Date: 20160204
  Transmission Date: 20160526
  Serious: Yes (Hospitalization, Other)
  Sender: FDA-Public Use
  Company Number: FR-GLAXOSMITHKLINE-FR2016GSK016076

PATIENT
  Sex: Female

DRUGS (6)
  1. SUCCINYLCHOLINE [Suspect]
     Active Substance: SUCCINYLCHOLINE
     Indication: ENDOTRACHEAL INTUBATION
  2. RABEPRAZOLE [Suspect]
     Active Substance: RABEPRAZOLE
     Indication: PROPHYLAXIS
     Route: 064
  3. SUCCINYLCHOLINE [Suspect]
     Active Substance: SUCCINYLCHOLINE
     Indication: MUSCLE RELAXANT THERAPY
     Dosage: 1.08 MG/KG, UNK
  4. ETOMIDATE. [Suspect]
     Active Substance: ETOMIDATE
     Dosage: 0.4 MG/KG, UNK
     Route: 064
  5. RANITIDINE [Suspect]
     Active Substance: RANITIDINE\RANITIDINE HYDROCHLORIDE
     Indication: PROPHYLAXIS
     Dosage: 150 MG, UNK
  6. REMIFENTANIL [Suspect]
     Active Substance: REMIFENTANIL

REACTIONS (3)
  - Foetal exposure during pregnancy [Unknown]
  - Respiratory distress [Recovering/Resolving]
  - Live birth [Unknown]
